FAERS Safety Report 15691945 (Version 1)
Quarter: 2018Q4

REPORT INFORMATION
  Report Type: Report from Study
  Country: CA (occurrence: CA)
  Receive Date: 20181205
  Receipt Date: 20181205
  Transmission Date: 20190205
  Serious: Yes (Death)
  Sender: FDA-Public Use
  Company Number: CA-TAIHO ONCOLOGY  INC-EU-2018-01338

PATIENT
  Age: 87 Year
  Sex: Male
  Weight: 70.4 kg

DRUGS (14)
  1. LONSURF [Suspect]
     Active Substance: TIPIRACIL HYDROCHLORIDE\TRIFLURIDINE
     Indication: COLORECTAL CANCER METASTATIC
     Dosage: CYCLES 1-3.  ?CYCLE 1 STARTED ON 21/MAY/2018 AND ENDED ON 18/JUN/2018.?CYCLE 2 STARTED ON 16/JUN/201
     Route: 048
     Dates: start: 20180521, end: 20180812
  2. PREDNISONE. [Concomitant]
     Active Substance: PREDNISONE
  3. ESCITALOPRAM [Concomitant]
     Active Substance: ESCITALOPRAM OXALATE
  4. DIGOXIN. [Concomitant]
     Active Substance: DIGOXIN
  5. SIMVASTATIN. [Concomitant]
     Active Substance: SIMVASTATIN
  6. INSPIOLTO [Concomitant]
     Active Substance: OLODATEROL HYDROCHLORIDE\TIOTROPIUM BROMIDE MONOHYDRATE
     Dosage: PUFFER, 2 PUFFS
  7. BISOPROLOL [Concomitant]
     Active Substance: BISOPROLOL
  8. EZETIMIBE. [Concomitant]
     Active Substance: EZETIMIBE
  9. LONSURF [Suspect]
     Active Substance: TIPIRACIL HYDROCHLORIDE\TRIFLURIDINE
     Route: 048
     Dates: start: 20180825, end: 2018
  10. RABEPRAZOLE [Concomitant]
     Active Substance: RABEPRAZOLE
  11. COVERSYL [Concomitant]
     Active Substance: PERINDOPRIL
  12. APO-GABAPENTIN [Concomitant]
     Active Substance: GABAPENTIN
     Indication: PAIN
     Dosage: 1-2 TABS
  13. RIVAROXABAN [Concomitant]
     Active Substance: RIVAROXABAN
  14. FUROSEMIDE. [Concomitant]
     Active Substance: FUROSEMIDE

REACTIONS (2)
  - Death [Fatal]
  - Cytopenia [Unknown]

NARRATIVE: CASE EVENT DATE: 20180814
